FAERS Safety Report 16076882 (Version 2)
Quarter: 2019Q2

REPORT INFORMATION
  Report Type: Report from Study
  Country: US (occurrence: US)
  Receive Date: 20190315
  Receipt Date: 20190524
  Transmission Date: 20190711
  Serious: No
  Sender: FDA-Public Use
  Company Number: PHEH2019US010956

PATIENT
  Sex: Male
  Weight: 108.84 kg

DRUGS (2)
  1. COSENTYX [Suspect]
     Active Substance: SECUKINUMAB
     Dosage: 300 MG, QMO
     Route: 058
  2. COSENTYX [Suspect]
     Active Substance: SECUKINUMAB
     Indication: PSORIASIS
     Dosage: 300 MG, UNK (AT DAY 28 (DOSE 5) THEN EVERY 4 WEEKS)
     Route: 058
     Dates: start: 20190218

REACTIONS (4)
  - Dust allergy [Unknown]
  - Wound [Unknown]
  - Dry skin [Unknown]
  - Pain of skin [Unknown]
